FAERS Safety Report 8651509 (Version 4)
Quarter: 2022Q3

REPORT INFORMATION
  Report Type: Spontaneous
  Country: US (occurrence: US)
  Receive Date: 20120706
  Receipt Date: 20220912
  Transmission Date: 20221027
  Serious: Yes (Other)
  Sender: FDA-Public Use
  Company Number: US-BAYER-2012-066700

PATIENT
  Age: 34 Year
  Sex: Female

DRUGS (2)
  1. MIRENA [Suspect]
     Active Substance: LEVONORGESTREL
     Indication: Contraception
     Dosage: 20?G/DAY
     Route: 015
     Dates: start: 20090521
  2. EC-NAPROSYN [Concomitant]
     Active Substance: NAPROXEN
     Dosage: 500 MG
     Route: 048

REACTIONS (5)
  - Device dislocation [None]
  - Menstruation delayed [None]
  - Pregnancy with contraceptive device [None]
  - Haemorrhage in pregnancy [None]
  - Cervix disorder [None]

NARRATIVE: CASE EVENT DATE: 20120201
